FAERS Safety Report 6484249-2 (Version None)
Quarter: 2009Q4

REPORT INFORMATION
  Report Type: 
  Country: None (occurrence: None)
  Receive Date: 20091209
  Receipt Date: 20091201
  Transmission Date: 20100525
  Serious: Yes (Life-Threatening, Hospitalization)
  Sender: FDA-Public Use
  Company Number: B0612380A

PATIENT
  Sex: Female

DRUGS (11)
  1. REQUIP [Suspect]
     Indication: PARKINSON'S DISEASE
     Dates: start: 20080812
  2. CABERGOLINE [Suspect]
     Dosage: 4MG PER DAY
     Dates: start: 20080125, end: 20080701
  3. FALITHROM [Suspect]
     Dates: start: 20070505, end: 20080601
  4. ASPIRIN [Concomitant]
     Dosage: 100MG PER DAY
     Dates: start: 19910101
  5. TORASEMIDE [Concomitant]
     Indication: HYPERTENSION
     Dosage: 10MG PER DAY
     Dates: start: 20070501
  6. DIOVAN [Concomitant]
     Indication: HYPERTENSION
     Dosage: 40MG PER DAY
     Dates: start: 20070501, end: 20080601
  7. PANTOZOL [Concomitant]
     Indication: GASTRIC ULCER
     Dosage: 20MG PER DAY
     Dates: start: 20070501
  8. NEBILET [Concomitant]
     Indication: HYPERTENSION
     Dosage: 2.5MG TWICE PER DAY
     Dates: start: 20070501, end: 20080601
  9. INEGY [Concomitant]
     Dates: start: 20070501
  10. ISCOVER [Concomitant]
     Indication: CARDIOVASCULAR EVENT PROPHYLAXIS
     Dosage: 75MG PER DAY
     Dates: start: 20060601, end: 20090601
  11. MARCUMAR [Concomitant]
     Indication: CARDIOVASCULAR EVENT PROPHYLAXIS
     Dates: start: 20090601

REACTIONS (7)
  - ARRHYTHMIA [None]
  - CARDIAC FAILURE [None]
  - GASTROINTESTINAL HAEMORRHAGE [None]
  - HYPOVOLAEMIC SHOCK [None]
  - ILIAC ARTERY STENOSIS [None]
  - MITRAL VALVE INCOMPETENCE [None]
  - MYOCARDIAL INFARCTION [None]
